FAERS Safety Report 6610368-3 (Version None)
Quarter: 2010Q1

REPORT INFORMATION
  Report Type: 
  Country: None (occurrence: None)
  Receive Date: 20100302
  Receipt Date: 20100225
  Transmission Date: 20100710
  Serious: Yes (Hospitalization, Other)
  Sender: FDA-Public Use
  Company Number: GB-CEPHALON-2010001154

PATIENT
  Age: 62 Year
  Sex: Male

DRUGS (2)
  1. PROVIGIL [Suspect]
     Indication: SLEEP DISORDER
     Route: 048
     Dates: start: 20100106, end: 20100206
  2. TRAZODONE HCL [Concomitant]
     Dates: start: 20091006

REACTIONS (3)
  - BODY TEMPERATURE INCREASED [None]
  - CELLULITIS [None]
  - EPISTAXIS [None]
